FAERS Safety Report 4336288-5 (Version None)
Quarter: 2004Q2

REPORT INFORMATION
  Report Type: 
  Country: None (occurrence: None)
  Receive Date: 20040409
  Receipt Date: 20040409
  Transmission Date: 20050107
  Serious: Yes (Hospitalization, Other)
  Sender: FDA-Public Use
  Company Number: None

PATIENT
  Age: 79 Year
  Sex: Male

DRUGS (9)
  1. COUMADIN [Suspect]
     Indication: ATRIAL FIBRILLATION
  2. DILTIAZEM [Concomitant]
  3. FUROSEMIDE [Concomitant]
  4. FOSINOPRIL SODIUM [Concomitant]
  5. GEMFIBROZIL [Concomitant]
  6. GLIPIZIDE [Concomitant]
  7. VIT B12 [Concomitant]
  8. TRAZODONE HCL [Concomitant]
  9. GABAPENTIN [Concomitant]

REACTIONS (3)
  - COAGULOPATHY [None]
  - HAEMATURIA [None]
  - INFECTION [None]
